FAERS Safety Report 6077329-7 (Version None)
Quarter: 2009Q1

REPORT INFORMATION
  Report Type: 
  Country: None (occurrence: None)
  Receive Date: 20090213
  Receipt Date: 20090212
  Transmission Date: 20090719
  Serious: Yes (Life-Threatening, Hospitalization)
  Sender: FDA-Public Use
  Company Number: B0557605A

PATIENT
  Age: 21 Year
  Sex: Female

DRUGS (17)
  1. ORBENINE [Suspect]
     Indication: ERYTHROSIS
     Dosage: 1G TWICE PER DAY
     Route: 048
     Dates: start: 20081206, end: 20081212
  2. PYOSTACINE [Suspect]
     Indication: ERYTHROSIS
     Dosage: 1G TWICE PER DAY
     Route: 048
     Dates: start: 20081202, end: 20081206
  3. XYZAL [Suspect]
     Indication: ERYTHROSIS
     Dosage: 10MG PER DAY
     Route: 048
     Dates: start: 20081202, end: 20081206
  4. FUCIDINE CAP [Suspect]
     Indication: ERYTHROSIS
     Route: 061
     Dates: start: 20081202, end: 20081206
  5. DIASEPTYL [Suspect]
     Indication: ERYTHROSIS
     Route: 061
     Dates: start: 20081202, end: 20081206
  6. EFFICORT [Suspect]
     Indication: ERYTHROSIS
     Route: 061
     Dates: start: 20081206, end: 20081212
  7. MUPIDERM [Suspect]
     Indication: ERYTHROSIS
     Route: 061
     Dates: start: 20081206, end: 20081210
  8. PIPERACILLINE [Suspect]
     Route: 065
  9. TAZOCILLINE [Suspect]
     Route: 065
  10. AUREOMYCINE [Concomitant]
     Dates: start: 20081201
  11. CELESTAMINE TAB [Concomitant]
     Dates: start: 20081211
  12. DESONIDE [Concomitant]
     Dates: start: 20081211
  13. AUGMENTIN '125' [Concomitant]
     Dates: start: 20081213
  14. BRISTOPEN [Concomitant]
     Dates: start: 20081213
  15. NETROMYCIN [Concomitant]
     Dates: start: 20081213
  16. CEFTRIAXONE [Concomitant]
  17. ROCEPHIN [Concomitant]

REACTIONS (12)
  - BLISTER [None]
  - DIARRHOEA [None]
  - LUNG DISORDER [None]
  - OEDEMA [None]
  - PURPURA [None]
  - PYREXIA [None]
  - RASH [None]
  - RASH GENERALISED [None]
  - SKIN DISORDER [None]
  - SKIN EXFOLIATION [None]
  - SKIN LESION [None]
  - TOXIC EPIDERMAL NECROLYSIS [None]
